FAERS Safety Report 16068351 (Version 1)
Quarter: 2019Q1

REPORT INFORMATION
  Report Type: Spontaneous
  Country: ES (occurrence: ES)
  Receive Date: 20190313
  Receipt Date: 20190313
  Transmission Date: 20190418
  Serious: Yes (Other)
  Sender: FDA-Public Use
  Company Number: ES-ALLERGAN-1909415US

PATIENT
  Sex: Female

DRUGS (1)
  1. COMBIGAN [Suspect]
     Active Substance: BRIMONIDINE TARTRATE\TIMOLOL MALEATE
     Indication: CONJUNCTIVITIS
     Dosage: UNK
     Route: 047

REACTIONS (4)
  - Uveitis [Unknown]
  - Off label use [Unknown]
  - Intraocular pressure increased [Recovered/Resolved]
  - Eye pain [Unknown]
